FAERS Safety Report 10442699 (Version 1)
Quarter: 2014Q3

REPORT INFORMATION
  Report Type: Spontaneous
  Country: IR (occurrence: None)
  Receive Date: 20140908
  Receipt Date: 20140908
  Transmission Date: 20150326
  Serious: Yes (Other)
  Sender: FDA-Public Use
  Company Number: IPC201408-000438

PATIENT
  Age: 21 Year
  Sex: Male

DRUGS (2)
  1. METHADONE [Suspect]
     Active Substance: METHADONE HYDROCHLORIDE
  2. TRAMADOL (TRAMADOL) (TRAMADOL) [Suspect]
     Active Substance: TRAMADOL

REACTIONS (5)
  - Toxicity to various agents [None]
  - Joint dislocation [None]
  - Intentional overdose [None]
  - Loss of consciousness [None]
  - Generalised tonic-clonic seizure [None]
